FAERS Safety Report 24657171 (Version 2)
Quarter: 2024Q4

REPORT INFORMATION
  Report Type: Spontaneous
  Country: TW (occurrence: TW)
  Receive Date: 20241125
  Receipt Date: 20241128
  Transmission Date: 20250114
  Serious: Yes (Other)
  Sender: MERCK
  Company Number: TW-009507513-2411TWN008277

PATIENT
  Age: 50 Year
  Sex: Male

DRUGS (15)
  1. PEMBROLIZUMAB [Suspect]
     Active Substance: PEMBROLIZUMAB
     Indication: Squamous cell carcinoma of lung
     Dosage: 200 MILLIGRAM
  2. PEMBROLIZUMAB [Suspect]
     Active Substance: PEMBROLIZUMAB
     Dosage: 200 MILLIGRAM, UNK; 5TH CYCLE
     Dates: start: 20240402, end: 20240402
  3. PEMBROLIZUMAB [Suspect]
     Active Substance: PEMBROLIZUMAB
     Dosage: 200 MILLIGRAM, UNK; 6H CYCLE
     Dates: start: 20240426, end: 20240426
  4. PEMBROLIZUMAB [Suspect]
     Active Substance: PEMBROLIZUMAB
     Dosage: 200 MILLIGRAM, UNK; 7TH CYCLE
     Dates: start: 20240517, end: 20240517
  5. PEMBROLIZUMAB [Suspect]
     Active Substance: PEMBROLIZUMAB
     Dosage: 200 MILLIGRAM, UNK; 8TH CYCLE
     Dates: start: 20240625, end: 20240625
  6. PEMBROLIZUMAB [Suspect]
     Active Substance: PEMBROLIZUMAB
     Dosage: 200 MILLIGRAM, UNK; 9TH CYCLE
     Dates: start: 20240716, end: 20240716
  7. PEMBROLIZUMAB [Suspect]
     Active Substance: PEMBROLIZUMAB
     Dosage: 200 MILLIGRAM, UNK; 10TH CYCLE
     Dates: start: 20240809, end: 20240809
  8. PEMBROLIZUMAB [Suspect]
     Active Substance: PEMBROLIZUMAB
     Dosage: 200 MILLIGRAM, UNK; 11TH CYCLE
     Dates: start: 20240907, end: 20240907
  9. PEMBROLIZUMAB [Suspect]
     Active Substance: PEMBROLIZUMAB
     Dosage: 200 MILLIGRAM, UNK; 12TH CYCLE
     Dates: start: 20240930, end: 20240930
  10. PEMBROLIZUMAB [Suspect]
     Active Substance: PEMBROLIZUMAB
     Dosage: 200 MILLIGRAM, UNK; 13TH CYCLE
     Dates: start: 20241021, end: 20241021
  11. PEMBROLIZUMAB [Suspect]
     Active Substance: PEMBROLIZUMAB
     Dosage: 200 MILLIGRAM, UNK; 14TH CYCLE
     Dates: start: 20241112, end: 20241112
  12. PACLITAXEL [Suspect]
     Active Substance: PACLITAXEL
     Indication: Squamous cell carcinoma of lung
     Dosage: 350 MILLIGRAM, UNK
  13. PACLITAXEL [Suspect]
     Active Substance: PACLITAXEL
     Dosage: 350 MILLIGRAM, UNK, 5TH CYCLE
     Dates: start: 20240402, end: 20240402
  14. PACLITAXEL [Suspect]
     Active Substance: PACLITAXEL
     Dosage: 350 MILLIGRAM, UNK, 6TH CYCLE
     Dates: start: 20240426, end: 20240426
  15. PACLITAXEL [Suspect]
     Active Substance: PACLITAXEL
     Dosage: 350 MILLIGRAM, UNK, 7TH CYCLE
     Dates: start: 20240517, end: 20240517

REACTIONS (14)
  - Pulmonary fibrosis [Unknown]
  - Malignant neoplasm progression [Unknown]
  - Cardiomegaly [Unknown]
  - Renal cyst [Unknown]
  - Spinal osteoarthritis [Unknown]
  - Ligament calcification [Unknown]
  - Atelectasis [Unknown]
  - Pulmonary granuloma [Unknown]
  - Inappropriate schedule of product administration [Unknown]
  - Inappropriate schedule of product administration [Unknown]
  - Inappropriate schedule of product administration [Unknown]
  - Inappropriate schedule of product administration [Unknown]
  - Inappropriate schedule of product administration [Unknown]
  - Inappropriate schedule of product administration [Unknown]

NARRATIVE: CASE EVENT DATE: 20240426
